FAERS Safety Report 15507524 (Version 5)
Quarter: 2019Q1

REPORT INFORMATION
  Report Type: Report from Study
  Country: FR (occurrence: FR)
  Receive Date: 20181016
  Receipt Date: 20190124
  Transmission Date: 20190417
  Serious: Yes (Hospitalization)
  Sender: FDA-Public Use
  Company Number: FR-EXELIXIS-XL18418016355

PATIENT
  Age: 73 Year
  Sex: Male
  Weight: 94 kg

DRUGS (6)
  1. CABOZANTINIB [Suspect]
     Active Substance: CABOZANTINIB
     Dosage: UNK UNK, QD
     Route: 048
     Dates: start: 20181002
  2. CABOZANTINIB [Suspect]
     Active Substance: CABOZANTINIB
     Dosage: 60 MG, QD
     Route: 048
     Dates: start: 20180910, end: 20180914
  3. CABOZANTINIB [Suspect]
     Active Substance: CABOZANTINIB
     Dosage: UNK UNK, QD
     Route: 048
     Dates: start: 20180907, end: 20180909
  4. CABOZANTINIB [Suspect]
     Active Substance: CABOZANTINIB
     Indication: RENAL CELL CARCINOMA
     Dosage: 60 MG, QD
     Route: 048
     Dates: start: 20180730, end: 20180906
  5. CABOZANTINIB [Suspect]
     Active Substance: CABOZANTINIB
     Dosage: 20 MG, QD
     Route: 048
     Dates: start: 20181112
  6. CABOZANTINIB [Suspect]
     Active Substance: CABOZANTINIB
     Dosage: 40 MG, QD
     Route: 048
     Dates: start: 20180915, end: 20181001

REACTIONS (11)
  - Diarrhoea [Recovered/Resolved]
  - Decreased appetite [Recovered/Resolved]
  - Skin exfoliation [Recovered/Resolved]
  - Vomiting [Recovered/Resolved]
  - Gout [Recovered/Resolved]
  - General physical health deterioration [Recovered/Resolved]
  - Hypoproteinaemia [Recovering/Resolving]
  - Epistaxis [Recovered/Resolved]
  - Fatigue [Recovered/Resolved]
  - Aphonia [Recovered/Resolved]
  - Blood pressure increased [Recovered/Resolved]

NARRATIVE: CASE EVENT DATE: 20180822
